FAERS Safety Report 16128590 (Version 2)
Quarter: 2019Q2

REPORT INFORMATION
  Report Type: Report from Study
  Country: None (occurrence: BR)
  Receive Date: 20190328
  Receipt Date: 20190614
  Transmission Date: 20190711
  Serious: Yes (Other)
  Sender: FDA-Public Use
  Company Number: BR-ABBVIE-19K-020-2721952-00

PATIENT
  Sex: Female
  Weight: 64 kg

DRUGS (5)
  1. ISONIAZID. [Suspect]
     Active Substance: ISONIAZID
     Indication: DISSEMINATED TUBERCULOSIS
     Route: 065
     Dates: start: 201901
  2. IBURAM [Suspect]
     Active Substance: IBUPROFEN
     Indication: DISSEMINATED TUBERCULOSIS
     Route: 065
  3. HUMIRA [Suspect]
     Active Substance: ADALIMUMAB
     Indication: CROHN^S DISEASE
     Route: 058
     Dates: start: 201808, end: 20190107
  4. RIFAMPICIN [Suspect]
     Active Substance: RIFAMPIN
     Indication: DISSEMINATED TUBERCULOSIS
     Route: 065
     Dates: start: 201901
  5. VITAMIN D [Concomitant]
     Active Substance: VITAMIN D NOS
     Indication: PRODUCT USED FOR UNKNOWN INDICATION

REACTIONS (7)
  - Intracranial mass [Unknown]
  - Tuberculosis [Unknown]
  - Tachycardia [Unknown]
  - Abdominal mass [Unknown]
  - Adverse drug reaction [Unknown]
  - Pulmonary mass [Unknown]
  - Disseminated tuberculosis [Not Recovered/Not Resolved]

NARRATIVE: CASE EVENT DATE: 2019
